FAERS Safety Report 14230510 (Version 1)
Quarter: 2017Q4

REPORT INFORMATION
  Report Type: Not Available
  Country: US (occurrence: US)
  Receive Date: 20171128
  Receipt Date: 20171128
  Transmission Date: 20180321
  Serious: Yes (Other)
  Sender: FDA-Public Use
  Company Number: US-NEUROCRINE BIOSCIENCES INC.-2017NBI01324

PATIENT
  Age: 59 Year
  Sex: Female
  Weight: 52.21 kg

DRUGS (1)
  1. INGREZZA [Suspect]
     Active Substance: VALBENAZINE
     Indication: TARDIVE DYSKINESIA
     Route: 048
     Dates: start: 20171019

REACTIONS (4)
  - Tremor [Not Recovered/Not Resolved]
  - Gastric neoplasm [Recovered/Resolved]
  - Abdominal discomfort [Not Recovered/Not Resolved]
  - Drug effect incomplete [None]

NARRATIVE: CASE EVENT DATE: 2017
